FAERS Safety Report 16787591 (Version 1)
Quarter: 2019Q4

REPORT INFORMATION
  Report Type: Spontaneous
  Country: US (occurrence: US)
  Receive Date: 20190909
  Receipt Date: 20190909
  Transmission Date: 20200122
  Serious: Yes (Life-Threatening)
  Sender: FDA-Public Use
  Company Number: None

PATIENT
  Age: 83 Year
  Sex: Male

DRUGS (4)
  1. WARFARIN [Concomitant]
     Active Substance: WARFARIN
  2. CLOPIDOGREL [Suspect]
     Active Substance: CLOPIDOGREL BISULFATE
  3. CLOPIDOGREL [Concomitant]
     Active Substance: CLOPIDOGREL BISULFATE
  4. WARFARIN [Suspect]
     Active Substance: WARFARIN

REACTIONS (8)
  - Condition aggravated [None]
  - Platelet dysfunction [None]
  - Bronchial disorder [None]
  - Haematocrit decreased [None]
  - Haemoptysis [None]
  - Lung neoplasm malignant [None]
  - Haemoglobin decreased [None]
  - Anticoagulation drug level below therapeutic [None]

NARRATIVE: CASE EVENT DATE: 20190906
